FAERS Safety Report 12909889 (Version 1)
Quarter: 2016Q4

REPORT INFORMATION
  Report Type: Other
  Country: JP (occurrence: JP)
  Receive Date: 20161104
  Receipt Date: 20161104
  Transmission Date: 20170207
  Serious: Yes (Other)
  Sender: FDA-Public Use
  Company Number: JP-LUPIN PHARMACEUTICALS INC.-2016-04898

PATIENT
  Age: 70 Year
  Sex: Male

DRUGS (12)
  1. AMIKACIN [Concomitant]
     Active Substance: AMIKACIN
     Indication: PNEUMONIA PSEUDOMONAL
     Route: 065
  2. LEVOFLOXACIN. [Suspect]
     Active Substance: LEVOFLOXACIN
     Indication: PNEUMONIA PSEUDOMONAL
     Route: 065
  3. CIPROFLOXACIN. [Suspect]
     Active Substance: CIPROFLOXACIN
     Indication: SEPTIC SHOCK
     Route: 065
  4. CIPROFLOXACIN. [Suspect]
     Active Substance: CIPROFLOXACIN
     Indication: PNEUMONIA PSEUDOMONAL
  5. DORIPENEM [Concomitant]
     Active Substance: DORIPENEM
     Indication: SEPTIC SHOCK
  6. CLINDAMYCIN. [Concomitant]
     Active Substance: CLINDAMYCIN
     Indication: PNEUMONIA PSEUDOMONAL
     Route: 065
  7. CLINDAMYCIN. [Concomitant]
     Active Substance: CLINDAMYCIN
     Indication: SEPTIC SHOCK
  8. AMIKACIN [Concomitant]
     Active Substance: AMIKACIN
     Indication: SEPTIC SHOCK
  9. TAZOBACTAM+ PIPERACILLIN [Concomitant]
     Indication: PNEUMONIA PSEUDOMONAL
     Route: 065
  10. LEVOFLOXACIN. [Suspect]
     Active Substance: LEVOFLOXACIN
     Indication: SEPTIC SHOCK
  11. DORIPENEM [Concomitant]
     Active Substance: DORIPENEM
     Indication: PNEUMONIA PSEUDOMONAL
     Route: 065
  12. TAZOBACTAM+ PIPERACILLIN [Concomitant]
     Indication: SEPTIC SHOCK

REACTIONS (2)
  - Multiple-drug resistance [Unknown]
  - Acute kidney injury [Unknown]
